FAERS Safety Report 6521962-2 (Version None)
Quarter: 2009Q4

REPORT INFORMATION
  Report Type: 
  Country: None (occurrence: None)
  Receive Date: 20091224
  Receipt Date: 20091210
  Transmission Date: 20100525
  Serious: Yes (Other)
  Sender: FDA-Public Use
  Company Number: 2009AM000840

PATIENT
  Sex: Female

DRUGS (3)
  1. SYMLIN [Suspect]
     Indication: DRUG USE FOR UNKNOWN INDICATION
     Dosage: 45 MCG; SC
     Route: 058
  2. LEVEMIR [Concomitant]
  3. PREV MEDS [Concomitant]

REACTIONS (5)
  - BLOOD GLUCOSE INCREASED [None]
  - BRAIN INJURY [None]
  - CARDIAC FAILURE CONGESTIVE [None]
  - INCISION SITE PAIN [None]
  - ROAD TRAFFIC ACCIDENT [None]
